FAERS Safety Report 5197616-4 (Version None)
Quarter: 2007Q1

REPORT INFORMATION
  Report Type: 
  Country: None (occurrence: None)
  Receive Date: 20070103
  Receipt Date: 20061222
  Transmission Date: 20070707
  Serious: Yes (Hospitalization)
  Sender: FDA-Public Use
  Company Number: JP-PFIZER INC-2006147279

PATIENT
  Age: 58 Year
  Sex: Male
  Weight: 82 kg

DRUGS (3)
  1. CABERGOLINE [Suspect]
     Indication: PITUITARY TUMOUR BENIGN
     Route: 048
  2. CORTRIL [Concomitant]
     Route: 048
  3. THYRADIN-S [Concomitant]
     Route: 048
     Dates: start: 20050622

REACTIONS (2)
  - INTRACRANIAL HYPOTENSION [None]
  - MENINGITIS [None]
